FAERS Safety Report 7759696-9 (Version None)
Quarter: 2011Q3

REPORT INFORMATION
  Report Type: 
  Country: None (occurrence: None)
  Receive Date: 20110915
  Receipt Date: 20110913
  Transmission Date: 20111222
  Serious: Yes (Death)
  Sender: FDA-Public Use
  Company Number: 2006SP008895

PATIENT
  Age: 83 Year
  Sex: Male
  Weight: 41 kg

DRUGS (6)
  1. FAMOTIDINE [Concomitant]
  2. AMINO ACIDS/CARBOHYDRATES/MINERALS/VITAMINS [Concomitant]
  3. MUCOSTA [Concomitant]
  4. PENICILLIN [Concomitant]
  5. TEMODAL [Suspect]
     Indication: GLIOBLASTOMA MULTIFORME
     Dosage: 150 MG/M2; QD; PO
     Route: 048
     Dates: start: 20060920, end: 20060924
  6. PREDNISOLONE [Concomitant]

REACTIONS (9)
  - LYMPHOCYTE COUNT DECREASED [None]
  - HYPOPHAGIA [None]
  - PNEUMONIA [None]
  - DECREASED ACTIVITY [None]
  - RESPIRATORY FAILURE [None]
  - OPPORTUNISTIC INFECTION [None]
  - DECREASED APPETITE [None]
  - IMMUNODEFICIENCY [None]
  - FUNGAL TEST POSITIVE [None]
